FAERS Safety Report 6066193-8 (Version None)
Quarter: 2009Q1

REPORT INFORMATION
  Report Type: 
  Country: None (occurrence: None)
  Receive Date: 20090205
  Receipt Date: 20090127
  Transmission Date: 20090719
  Serious: Yes (Other)
  Sender: FDA-Public Use
  Company Number: PHHY2009FR02907

PATIENT
  Age: 14 Year
  Sex: Female

DRUGS (4)
  1. RITALIN [Suspect]
     Indication: DYSPRAXIA
     Dosage: 30 MG DAILY
  2. LEVOTHYROX [Concomitant]
     Dosage: UNK
  3. HYDROCORTISONE [Concomitant]
     Dosage: UNK
  4. HORMONES [Concomitant]
     Dosage: UNK

REACTIONS (2)
  - NEPHROLITHIASIS [None]
  - RENAL COLIC [None]
